FAERS Safety Report 14442217 (Version 2)
Quarter: 2018Q1

REPORT INFORMATION
  Report Type: Report from Study
  Country: US (occurrence: US)
  Receive Date: 20180125
  Receipt Date: 20180205
  Transmission Date: 20180509
  Serious: Yes (Death)
  Sender: FDA-Public Use
  Company Number: US-OTSUKA-2018_000349

PATIENT
  Age: 64 Year
  Sex: Female
  Weight: 166 kg

DRUGS (2)
  1. ARIPIPRAZOLE. [Suspect]
     Active Substance: ARIPIPRAZOLE
     Indication: ANXIETY
     Dosage: 10 MG, QD
     Route: 065
     Dates: start: 2013
  2. ARIPIPRAZOLE. [Suspect]
     Active Substance: ARIPIPRAZOLE
     Indication: DEPRESSION

REACTIONS (29)
  - Oedema [Unknown]
  - Intervertebral disc degeneration [Unknown]
  - Constipation [Unknown]
  - Drug dose omission [Unknown]
  - Osteoarthritis [Unknown]
  - Stress [Unknown]
  - Peripheral swelling [Unknown]
  - Muscle spasms [Unknown]
  - Fibromyalgia [Unknown]
  - Somnolence [Unknown]
  - Acute myocardial infarction [Fatal]
  - Tonsillitis [Unknown]
  - Depression [Unknown]
  - Product use in unapproved indication [Unknown]
  - Back pain [Unknown]
  - Arthralgia [Unknown]
  - Headache [Unknown]
  - Tremor [Unknown]
  - Cellulitis [Unknown]
  - Influenza [Unknown]
  - Gastrooesophageal reflux disease [Unknown]
  - Palpitations [Unknown]
  - Insomnia [Unknown]
  - Weight increased [Unknown]
  - Hypertrophic cardiomyopathy [Unknown]
  - Feeling abnormal [Unknown]
  - Pain in extremity [Unknown]
  - Hypoglycaemia [Unknown]
  - Anxiety [Unknown]

NARRATIVE: CASE EVENT DATE: 20151029
